FAERS Safety Report 4631302-1 (Version None)
Quarter: 2005Q2

REPORT INFORMATION
  Report Type: 
  Country: None (occurrence: None)
  Receive Date: 20050406
  Receipt Date: 20050328
  Transmission Date: 20051028
  Serious: Yes (Other)
  Sender: FDA-Public Use
  Company Number: 2005042087

PATIENT
  Sex: Female
  Weight: 86.1834 kg

DRUGS (4)
  1. NORVASC [Suspect]
     Indication: HYPERTENSION
     Dosage: 10 MG (5 MG, 2 IN 1 D) ORAL
     Route: 048
     Dates: start: 20010501, end: 20050301
  2. TELMISARTAN [Concomitant]
  3. METOPROLOL SUCCINATE [Concomitant]
  4. ISOSORBIDE [Concomitant]

REACTIONS (2)
  - CORONARY ARTERY OCCLUSION [None]
  - VICTIM OF CRIME [None]
